FAERS Safety Report 6981315-X (Version None)
Quarter: 2010Q3

REPORT INFORMATION
  Report Type: 
  Country: None (occurrence: None)
  Receive Date: 20100909
  Receipt Date: 20100906
  Transmission Date: 20110219
  Serious: Yes (Hospitalization)
  Sender: FDA-Public Use
  Company Number: 002798

PATIENT
  Sex: Female
  Weight: 95.3 kg

DRUGS (11)
  1. CERTOLIZUMAB PEGOL [Suspect]
     Indication: RHEUMATOID ARTHRITIS
     Dosage: (200 MG 1X/2 WEEKS SUBCUTANEOUS)
     Route: 058
     Dates: start: 20081209, end: 20090804
  2. FLEXERIL [Concomitant]
  3. PLAQUENIL /00072603/ [Concomitant]
  4. PREDNISONE [Concomitant]
  5. PERCOCET [Concomitant]
  6. METHOTREXATE [Concomitant]
  7. FOLIC ACID [Concomitant]
  8. LISINOPRIL AND HYDROCHLOROTHIAZIDE [Concomitant]
  9. CITRACAL [Concomitant]
  10. FOSAMAX [Concomitant]
  11. MYLANTA AR ACID REDUCER [Concomitant]

REACTIONS (6)
  - C-REACTIVE PROTEIN INCREASED [None]
  - HYPERLIPIDAEMIA [None]
  - HYPERTENSION [None]
  - LACUNAR INFARCTION [None]
  - RED BLOOD CELL SEDIMENTATION RATE INCREASED [None]
  - RESPIRATORY RATE INCREASED [None]
